FAERS Safety Report 19308598 (Version 1)
Quarter: 2021Q2

REPORT INFORMATION
  Report Type: Spontaneous
  Country: TR (occurrence: TR)
  Receive Date: 20210526
  Receipt Date: 20210526
  Transmission Date: 20210717
  Serious: Yes (Life-Threatening, Other)
  Sender: FDA-Public Use
  Company Number: TR-FRESENIUS KABI-FK202105293

PATIENT
  Age: 36 Year
  Sex: Female

DRUGS (2)
  1. FENTANYL (MANUFACTURER UNKNOWN) [Suspect]
     Active Substance: FENTANYL
     Indication: ANAESTHESIA
     Route: 050
  2. BUPIVACAINE (MANUFACTURER UNKNOWN) [Suspect]
     Active Substance: BUPIVACAINE
     Indication: ANAESTHESIA
     Route: 050

REACTIONS (2)
  - Exposure during pregnancy [Recovered/Resolved with Sequelae]
  - Haemorrhagic stroke [Recovered/Resolved with Sequelae]
